FAERS Safety Report 4375523-4 (Version None)
Quarter: 2004Q2

REPORT INFORMATION
  Report Type: 
  Country: None (occurrence: None)
  Receive Date: 20040607
  Receipt Date: 20040525
  Transmission Date: 20050107
  Serious: Yes (Hospitalization)
  Sender: FDA-Public Use
  Company Number: 2004-BP-03521BP

PATIENT
  Age: 80 Year
  Sex: Male

DRUGS (6)
  1. CATAPRES [Suspect]
     Indication: HYPERTENSION
     Dosage: 0.6 MG (0.2 MG, 0.2 MG TID), PO
     Route: 048
     Dates: start: 19840101
  2. LOPRESSOR [Concomitant]
  3. PROCARDIA XL [Concomitant]
  4. PRINIVIL [Concomitant]
  5. ALDACTONE [Concomitant]
  6. K-DUR 10 [Concomitant]

REACTIONS (1)
  - BLOOD PRESSURE INCREASED [None]
